FAERS Safety Report 8712634 (Version 7)
Quarter: 2012Q4

REPORT INFORMATION
  Report Type: 
  Country: US (occurrence: US)
  Receive Date: 20120808
  Receipt Date: 20121005
  Transmission Date: 20130627
  Serious: Yes (Hospitalization, Other)
  Sender: FDA-Public Use
  Company Number: US-AMGEN-USASP2012047198

PATIENT
  Age: 69 Year
  Sex: Male
  Weight: 88.89 kg

DRUGS (15)
  1. EPOGEN [Suspect]
     Indication: HAEMODIALYSIS
     Dosage: 10000 IU, UNK
     Route: 042
     Dates: start: 20120420, end: 20120503
  2. EPOGEN [Suspect]
     Dosage: 11000 IU, UNK
     Route: 042
     Dates: start: 20120514, end: 20120521
  3. EPOGEN [Suspect]
     Dosage: 16000 IU, UNK
     Route: 042
     Dates: start: 20120604, end: 20120611
  4. EPOGEN [Suspect]
     Dosage: 21000 IU, UNK
     Route: 042
     Dates: start: 20120615, end: 20120710
  5. EPOGEN [Suspect]
     Dosage: 26000 IU, UNK
     Route: 042
     Dates: start: 20120711, end: 20120716
  6. EPOGEN [Suspect]
  7. ARANESP [Suspect]
     Indication: RENAL FAILURE
     Dosage: 150 mg, q3wk
     Dates: start: 20120112, end: 20120405
  8. ARANESP [Suspect]
     Indication: ANAEMIA
     Dosage: 200 mg, UNK
     Route: 058
     Dates: start: 20120723, end: 20120723
  9. ARANESP [Suspect]
     Dosage: 151 mg, UNK
     Dates: start: 20120201
  10. ARANESP [Suspect]
     Dosage: 152 mg, UNK
     Dates: start: 20120222
  11. ARANESP [Suspect]
     Dosage: 153 mg, UNK
     Dates: start: 20120313
  12. ARANESP [Suspect]
     Dosage: 154 mg, UNK
     Dates: start: 20120405
  13. LEFLUNOMIDE [Concomitant]
     Dosage: 20 mg, qd
     Route: 048
     Dates: start: 20120105
  14. ALLOPURINOL [Concomitant]
     Dosage: 150 mg, qd
     Dates: start: 20120106
  15. EPOGEN [Suspect]
     Indication: NEPHROGENIC ANAEMIA
     Dosage: UNK UNK, 2 times/wk
     Dates: start: 20120420, end: 20120716

REACTIONS (4)
  - Therapeutic response decreased [Not Recovered/Not Resolved]
  - Renal failure [Unknown]
  - Aplasia pure red cell [Unknown]
  - Folate deficiency [Unknown]
